FAERS Safety Report 17254805 (Version 1)
Quarter: 2020Q1

REPORT INFORMATION
  Report Type: Spontaneous
  Country: CA (occurrence: CA)
  Receive Date: 20200109
  Receipt Date: 20200109
  Transmission Date: 20200409
  Serious: Yes (Other)
  Sender: FDA-Public Use
  Company Number: CA-SAMSUNG BIOEPIS-SB-2019-40870

PATIENT
  Age: 57 Year
  Sex: Female
  Weight: 89 kg

DRUGS (2)
  1. HUMIRA [Suspect]
     Active Substance: ADALIMUMAB
     Indication: PRODUCT USED FOR UNKNOWN INDICATION
     Dosage: SOLUTION SUBCUTANEOUS
     Route: 058
  2. INFLIXIMAB [Suspect]
     Active Substance: INFLIXIMAB
     Indication: CROHN^S DISEASE
     Route: 042

REACTIONS (10)
  - Abdominal pain [Unknown]
  - General physical health deterioration [Unknown]
  - Arthralgia [Unknown]
  - Drug hypersensitivity [Unknown]
  - Weight increased [Unknown]
  - Joint stiffness [Unknown]
  - Sinusitis [Unknown]
  - Uveitis [Unknown]
  - Intestinal operation [Unknown]
  - Anxiety [Unknown]
